FAERS Safety Report 25226512 (Version 2)
Quarter: 2025Q2

REPORT INFORMATION
  Report Type: Spontaneous
  Country: FR (occurrence: FR)
  Receive Date: 20250422
  Receipt Date: 20250603
  Transmission Date: 20250716
  Serious: Yes (Hospitalization)
  Sender: ALEXION PHARMACEUTICALS
  Company Number: FR-AstraZeneca-CH-00849793A

PATIENT
  Age: 46 Year
  Weight: 62.2 kg

DRUGS (15)
  1. SAPHNELO [Suspect]
     Active Substance: ANIFROLUMAB-FNIA
     Indication: Systemic lupus erythematosus
     Dosage: 300 MILLIGRAM, Q4W
  2. DOLIPRANE [Concomitant]
     Active Substance: ACETAMINOPHEN
     Dosage: 1000 MILLIGRAM, EVERY 4-6 HOURS, MAXIMUM 3 TIMES PER DAY
     Route: 065
  3. COUMADIN [Concomitant]
     Active Substance: WARFARIN SODIUM
     Route: 065
  4. PLAQUENIL [Concomitant]
     Active Substance: HYDROXYCHLOROQUINE SULFATE
     Dosage: 200 MILLIGRAM, QD
  5. PREDNISONE [Concomitant]
     Active Substance: PREDNISONE
     Dosage: 5 MILLIGRAM, QD, ONE TABLET ORALLY IN THE MORNING
  6. LYRICA [Concomitant]
     Active Substance: PREGABALIN
     Dosage: 50 MILLIGRAM, 5 TIMES A DAY, ONE TABLET ORALLY IN THE MORNING, AND TWO TABLETS AT MIDDAY AND IN THE EVENING
  7. ESOMEPRAZOLE [Concomitant]
     Active Substance: ESOMEPRAZOLE
     Dosage: 40 MILLIGRAM, QD
  8. PAROXETINE [Concomitant]
     Active Substance: PAROXETINE
     Dosage: 20 MILLIGRAM, QD
  9. CHOLECALCIFEROL [Concomitant]
     Active Substance: CHOLECALCIFEROL
     Dosage: 50000, QMONTH
  10. CITRATE [Concomitant]
     Active Substance: CITRIC ACID MONOHYDRATE
     Dosage: 3 GRAM, QD
  11. POTASSIUM CHLORIDE [Concomitant]
     Active Substance: POTASSIUM CHLORIDE
     Dosage: 2 UNK, QD
  12. AMBRISENTAN [Concomitant]
     Active Substance: AMBRISENTAN
     Dosage: 5 MILLIGRAM, QD
  13. REVATIO [Concomitant]
     Active Substance: SILDENAFIL CITRATE
     Dosage: 5 MILLIGRAM, TID, TAKE ONE TABLET ORALLY IN THE MORNING, AT MIDDAY, AND IN THE EVENING
  14. FUROSEMIDE [Concomitant]
     Active Substance: FUROSEMIDE
     Dosage: 250 MILLIGRAM, BID, TAKE HALF A TABLET IN THE MORNING AND AT MIDDAY
     Route: 065
  15. FEBUXOSTAT [Concomitant]
     Active Substance: FEBUXOSTAT

REACTIONS (1)
  - Endocarditis [Recovering/Resolving]
